FAERS Safety Report 10679085 (Version 1)
Quarter: 2014Q4

REPORT INFORMATION
  Report Type: Spontaneous
  Country: US (occurrence: US)
  Receive Date: 20141229
  Receipt Date: 20141229
  Transmission Date: 20150529
  Serious: No
  Sender: FDA-Public Use
  Company Number: US-PFIZER INC-2014352591

PATIENT
  Sex: Male

DRUGS (3)
  1. CODEINE [Suspect]
     Active Substance: CODEINE
     Dosage: UNK
  2. LOPID [Suspect]
     Active Substance: GEMFIBROZIL
     Dosage: UNK
  3. TACROLIMUS. [Suspect]
     Active Substance: TACROLIMUS
     Dosage: UNK

REACTIONS (1)
  - Drug hypersensitivity [Unknown]
